FAERS Safety Report 23769613 (Version 2)
Quarter: 2024Q2

REPORT INFORMATION
  Report Type: Report from Study
  Country: US (occurrence: US)
  Receive Date: 20240422
  Receipt Date: 20240424
  Transmission Date: 20240716
  Serious: Yes (Hospitalization)
  Sender: FDA-Public Use
  Company Number: US-ABBVIE-5726944

PATIENT
  Sex: Male

DRUGS (2)
  1. HUMIRA [Suspect]
     Active Substance: ADALIMUMAB
     Indication: Product used for unknown indication
     Dosage: FORM STRENGTH: 40 MG
     Route: 058
     Dates: end: 2024
  2. HUMIRA [Suspect]
     Active Substance: ADALIMUMAB
     Dosage: FORM STRENGTH: 40 MG
     Route: 058
     Dates: start: 202404

REACTIONS (8)
  - Hypoaesthesia [Unknown]
  - Papule [Unknown]
  - Rash [Unknown]
  - Pruritus [Unknown]
  - Product dose omission in error [Unknown]
  - Insomnia [Unknown]
  - Anxiety [Unknown]
  - Genital rash [Unknown]

NARRATIVE: CASE EVENT DATE: 20240101
